FAERS Safety Report 15604932 (Version 4)
Quarter: 2019Q2

REPORT INFORMATION
  Report Type: Report from Study
  Country: None (occurrence: US)
  Receive Date: 20181111
  Receipt Date: 20190603
  Transmission Date: 20190711
  Serious: Yes (Other)
  Sender: FDA-Public Use
  Company Number: US-ABBVIE-18K-163-2546062-00

PATIENT
  Age: 42 Year
  Sex: Female

DRUGS (3)
  1. HUMIRA [Suspect]
     Active Substance: ADALIMUMAB
     Dosage: CF HUMIRA
     Route: 058
     Dates: start: 201904, end: 2019
  2. HUMIRA [Suspect]
     Active Substance: ADALIMUMAB
     Route: 058
     Dates: start: 201905
  3. HUMIRA [Suspect]
     Active Substance: ADALIMUMAB
     Indication: CROHN^S DISEASE
     Route: 058

REACTIONS (8)
  - Skin erosion [Unknown]
  - Crohn^s disease [Recovered/Resolved]
  - Pityriasis lichenoides et varioliformis acuta [Recovering/Resolving]
  - Crohn^s disease [Unknown]
  - Facial paralysis [Recovered/Resolved]
  - Peripheral swelling [Unknown]
  - Therapeutic response shortened [Unknown]
  - Injection site rash [Unknown]

NARRATIVE: CASE EVENT DATE: 2018
